FAERS Safety Report 14384111 (Version 1)
Quarter: 2018Q1

REPORT INFORMATION
  Report Type: Spontaneous
  Country: US (occurrence: US)
  Receive Date: 20180115
  Receipt Date: 20180115
  Transmission Date: 20180509
  Serious: No
  Sender: FDA-Public Use
  Company Number: US-PFIZER INC-2018013643

PATIENT
  Age: 71 Year
  Sex: Male
  Weight: 122.4 kg

DRUGS (2)
  1. LATANOPROST. [Suspect]
     Active Substance: LATANOPROST
     Indication: PROPHYLAXIS
     Dosage: 2 DROPS (GTT), 1X/DAY (ONE DROP IN EACH EYE AT NIGHT PRIOR TO BED)
     Route: 047
  2. LATANOPROST. [Suspect]
     Active Substance: LATANOPROST
     Dosage: 2 DROPS (GTT), 1X/DAY (ONE DROP IN EACH EYE AT NIGHT PRIOR TO BED)
     Route: 047
     Dates: end: 201801

REACTIONS (1)
  - Eye irritation [Recovered/Resolved]
